FAERS Safety Report 9530810 (Version 2)
Quarter: 2013Q4

REPORT INFORMATION
  Report Type: Spontaneous
  Country: US (occurrence: US)
  Receive Date: 20130918
  Receipt Date: 20131011
  Transmission Date: 20140711
  Serious: No
  Sender: FDA-Public Use
  Company Number: US-009507513-1309USA006080

PATIENT
  Sex: Male

DRUGS (1)
  1. COPPERTONE ULTRAGUARD LOTION SPF 50 [Suspect]
     Indication: PRODUCT USED FOR UNKNOWN INDICATION
     Dosage: UNK, QD
     Route: 061

REACTIONS (3)
  - Eye pain [Unknown]
  - Discomfort [Unknown]
  - Accidental exposure to product [Unknown]
